FAERS Safety Report 25392290 (Version 2)
Quarter: 2025Q4

REPORT INFORMATION
  Report Type: Spontaneous
  Country: US (occurrence: US)
  Receive Date: 20250603
  Receipt Date: 20251007
  Transmission Date: 20260118
  Serious: No
  Sender: SANOFI AVENTIS
  Company Number: US-SA-2025SA154998

PATIENT
  Age: 83 Year
  Sex: Female
  Weight: 70.45 kg

DRUGS (10)
  1. DUPIXENT [Suspect]
     Active Substance: DUPILUMAB
     Indication: Dermatitis atopic
     Dosage: 300 MG, QOW
     Route: 058
     Dates: start: 20250408
  2. LUMIGAN [Concomitant]
     Active Substance: BIMATOPROST
  3. LEVOCETIRIZINE DIHYDROCHLORIDE [Concomitant]
     Active Substance: LEVOCETIRIZINE DIHYDROCHLORIDE
  4. RHOPRESSA [Concomitant]
     Active Substance: NETARSUDIL MESYLATE
  5. BRIMONIDINE;DORZOLAMIDE [Concomitant]
  6. CALCIUM [Concomitant]
     Active Substance: CALCIUM
  7. FISH OIL [Concomitant]
     Active Substance: FISH OIL
  8. TACROLIMUS [Concomitant]
     Active Substance: TACROLIMUS
  9. METFORMIN HYDROCHLORIDE [Concomitant]
     Active Substance: METFORMIN HYDROCHLORIDE
  10. VITAMIN D3 [Concomitant]
     Active Substance: CHOLECALCIFEROL

REACTIONS (2)
  - Urinary tract infection [Unknown]
  - Rash [Unknown]

NARRATIVE: CASE EVENT DATE: 20250101
